FAERS Safety Report 22160161 (Version 1)
Quarter: 2023Q1

REPORT INFORMATION
  Report Type: Spontaneous
  Country: US (occurrence: US)
  Receive Date: 20230331
  Receipt Date: 20230331
  Transmission Date: 20230418
  Serious: Yes (Other)
  Sender: FDA-Public Use
  Company Number: US-BRISTOL-MYERS SQUIBB COMPANY-2023-046378

PATIENT
  Age: 77 Year
  Sex: Female

DRUGS (1)
  1. POMALYST [Suspect]
     Active Substance: POMALIDOMIDE
     Indication: Plasma cell myeloma
     Dosage: DOSE : 2MG;     FREQ: 14 DAYS OUT OF A 21 DAY CYCLE
     Route: 048
     Dates: start: 20221205, end: 2023

REACTIONS (4)
  - Nausea [Unknown]
  - Contusion [Unknown]
  - Thrombosis [Unknown]
  - Off label use [Unknown]
